FAERS Safety Report 4667179-8 (Version None)
Quarter: 2005Q2

REPORT INFORMATION
  Report Type: 
  Country: None (occurrence: None)
  Receive Date: 20050520
  Receipt Date: 20050511
  Transmission Date: 20051028
  Serious: Yes (Hospitalization, Other)
  Sender: FDA-Public Use
  Company Number: US-JNJFOC-20050301092

PATIENT
  Age: 38 Year
  Sex: Male

DRUGS (3)
  1. REMICADE [Suspect]
     Indication: CROHN'S DISEASE
     Route: 042
  2. ACETOMINOPHEN [Concomitant]
     Indication: PREMEDICATION
  3. BENADRYL [Concomitant]
     Indication: PREMEDICATION
     Route: 042

REACTIONS (8)
  - ABDOMINAL PAIN [None]
  - ANXIETY [None]
  - CHEST DISCOMFORT [None]
  - CORONARY ARTERY DISEASE [None]
  - CORONARY ARTERY DISSECTION [None]
  - INFUSION RELATED REACTION [None]
  - PERIPHERAL COLDNESS [None]
  - SINUS TACHYCARDIA [None]
